FAERS Safety Report 8028796-0 (Version None)
Quarter: 2012Q1

REPORT INFORMATION
  Report Type: 
  Country: None (occurrence: None)
  Receive Date: 20120106
  Receipt Date: 20111227
  Transmission Date: 20120608
  Serious: Yes (Hospitalization)
  Sender: FDA-Public Use
  Company Number: SE-NOVOPROD-342254

PATIENT

DRUGS (2)
  1. INSULATARD FLEXPEN [Suspect]
     Indication: TYPE 1 DIABETES MELLITUS
     Dosage: 120 IU, QD
     Route: 065
  2. NOVORAPID FLEXPEN [Suspect]
     Indication: TYPE 1 DIABETES MELLITUS
     Dosage: 120 U, TID
     Route: 065

REACTIONS (2)
  - BLOOD GLUCOSE DECREASED [None]
  - MUSCLE SPASMS [None]
